FAERS Safety Report 20124883 (Version 1)
Quarter: 2021Q4

REPORT INFORMATION
  Report Type: Spontaneous
  Country: US (occurrence: None)
  Receive Date: 20211126
  Receipt Date: 20211126
  Transmission Date: 20220303
  Serious: No
  Sender: FDA-Public Use
  Company Number: None

PATIENT
  Age: 67 Year
  Sex: Male

DRUGS (1)
  1. HUMIRA [Suspect]
     Active Substance: ADALIMUMAB
     Indication: Psoriasis
     Dosage: OTHER FREQUENCY : D1 40MG,D8 40MG;?
     Route: 058
     Dates: start: 202010

REACTIONS (5)
  - Renal failure [None]
  - Cardiac disorder [None]
  - Condition aggravated [None]
  - Disease recurrence [None]
  - Cellulitis [None]
